FAERS Safety Report 5097357-8 (Version None)
Quarter: 2006Q3

REPORT INFORMATION
  Report Type: 
  Country: None (occurrence: None)
  Receive Date: 20060906
  Receipt Date: 20060620
  Transmission Date: 20061208
  Serious: Yes (Life-Threatening, Hospitalization)
  Sender: FDA-Public Use
  Company Number: GB-BRISTOL-MYERS SQUIBB COMPANY-13421300

PATIENT
  Age: 69 Year
  Sex: Male

DRUGS (20)
  1. ERBITUX [Suspect]
     Indication: COLORECTAL CANCER METASTATIC
     Route: 041
     Dates: start: 20050704, end: 20060119
  2. IRINOTECAN HCL [Suspect]
     Indication: COLORECTAL CANCER METASTATIC
     Route: 042
     Dates: start: 20050704, end: 20060119
  3. FOLINIC ACID [Suspect]
     Indication: COLORECTAL CANCER METASTATIC
     Route: 042
     Dates: start: 20050704, end: 20060119
  4. FLUOROURACIL [Suspect]
     Indication: COLORECTAL CANCER METASTATIC
     Route: 042
     Dates: start: 20050704, end: 20060119
  5. GRANISETRON [Concomitant]
  6. DEXAMETHASONE [Concomitant]
  7. OMEPRAZOLE [Concomitant]
  8. MORPHINE SULFATE [Concomitant]
  9. DOMPERIDONE [Concomitant]
  10. LISINOPRIL [Concomitant]
  11. PARACETAMOL [Concomitant]
  12. NYSTATIN [Concomitant]
  13. LACTULOSE [Concomitant]
  14. MEBEVERINE [Concomitant]
  15. CHLORPHENAMINE [Concomitant]
  16. ATROPINE [Concomitant]
  17. MORPHINE [Concomitant]
  18. LOPERAMIDE [Concomitant]
  19. CALAMINE LOTION [Concomitant]
  20. CODEINE [Concomitant]

REACTIONS (8)
  - BACK PAIN [None]
  - BLOOD PRESSURE INCREASED [None]
  - CEREBRAL HAEMORRHAGE [None]
  - CONVULSION [None]
  - DIABETES MELLITUS NON-INSULIN-DEPENDENT [None]
  - HEMIPLEGIA [None]
  - INCONTINENCE [None]
  - PAIN IN EXTREMITY [None]
